FAERS Safety Report 16321293 (Version 2)
Quarter: 2019Q2

REPORT INFORMATION
  Report Type: Spontaneous
  Country: None (occurrence: CO)
  Receive Date: 20190516
  Receipt Date: 20190523
  Transmission Date: 20190711
  Serious: Yes (Other)
  Sender: FDA-Public Use
  Company Number: CO-POPULATION COUNCIL, INC.-2067089

PATIENT
  Age: 20 Year
  Sex: Female

DRUGS (2)
  1. CLOTRIMAZOLE. [Suspect]
     Active Substance: CLOTRIMAZOLE
     Route: 067
  2. JADELLE [Suspect]
     Active Substance: LEVONORGESTREL
     Dates: start: 201812

REACTIONS (7)
  - Haematuria [Recovered/Resolved]
  - Vaginal discharge [Recovered/Resolved]
  - Candida infection [None]
  - Pain [Recovered/Resolved]
  - Abdominal pain [Not Recovered/Not Resolved]
  - Vaginal haemorrhage [Not Recovered/Not Resolved]
  - Amenorrhoea [Not Recovered/Not Resolved]

NARRATIVE: CASE EVENT DATE: 201812
